FAERS Safety Report 25659978 (Version 1)
Quarter: 2025Q3

REPORT INFORMATION
  Report Type: Spontaneous
  Country: CA (occurrence: CA)
  Receive Date: 20250808
  Receipt Date: 20250808
  Transmission Date: 20251020
  Serious: Yes (Other)
  Sender: ALEXION PHARMACEUTICALS
  Company Number: CA-002147023-NVSC2025CA120136

PATIENT
  Age: 53 Year
  Sex: Male

DRUGS (275)
  1. NEXIUM [Suspect]
     Active Substance: ESOMEPRAZOLE MAGNESIUM
     Route: 050
  2. NEXIUM 24HR [Suspect]
     Active Substance: ESOMEPRAZOLE MAGNESIUM
     Indication: Product used for unknown indication
  3. VOLTAREN [Suspect]
     Active Substance: DICLOFENAC SODIUM
     Indication: Migraine
     Route: 065
  4. ALMOTRIPTAN [Suspect]
     Active Substance: ALMOTRIPTAN
     Indication: Product used for unknown indication
     Route: 065
  5. ALMOTRIPTAN [Suspect]
     Active Substance: ALMOTRIPTAN
  6. ALMOTRIPTAN [Suspect]
     Active Substance: ALMOTRIPTAN
  7. GABAPENTIN [Suspect]
     Active Substance: GABAPENTIN
     Indication: Product used for unknown indication
     Route: 065
  8. CODEINE SULFATE [Suspect]
     Active Substance: CODEINE SULFATE
     Indication: Migraine
     Route: 050
  9. CODEINE SULFATE [Suspect]
     Active Substance: CODEINE SULFATE
     Route: 050
  10. TORADOL [Suspect]
     Active Substance: KETOROLAC TROMETHAMINE
     Indication: Migraine
     Route: 065
  11. TORADOL [Suspect]
     Active Substance: KETOROLAC TROMETHAMINE
  12. TORADOL [Suspect]
     Active Substance: KETOROLAC TROMETHAMINE
  13. MORPHINE SULFATE [Suspect]
     Active Substance: MORPHINE SULFATE
     Indication: Migraine
     Route: 065
  14. MORPHINE SULFATE [Suspect]
     Active Substance: MORPHINE SULFATE
  15. MORPHINE SULFATE [Suspect]
     Active Substance: MORPHINE SULFATE
  16. RIZATRIPTAN BENZOATE [Suspect]
     Active Substance: RIZATRIPTAN BENZOATE
     Indication: Product used for unknown indication
     Route: 065
  17. TRIAMCINOLONE ACETONIDE [Suspect]
     Active Substance: TRIAMCINOLONE ACETONIDE
     Indication: Migraine
     Route: 065
  18. NAPROXEN [Suspect]
     Active Substance: NAPROXEN
     Indication: Product used for unknown indication
     Route: 050
  19. NAPROXEN [Suspect]
     Active Substance: NAPROXEN
     Route: 050
  20. NAPROXEN [Suspect]
     Active Substance: NAPROXEN
     Route: 050
  21. NAPROXEN [Suspect]
     Active Substance: NAPROXEN
     Route: 050
  22. NAPROXEN [Suspect]
     Active Substance: NAPROXEN
     Route: 050
  23. NAPROXEN [Suspect]
     Active Substance: NAPROXEN
     Route: 050
  24. NAPROXEN [Suspect]
     Active Substance: NAPROXEN
     Route: 050
  25. NAPROXEN [Suspect]
     Active Substance: NAPROXEN
     Route: 050
  26. NAPROXEN [Suspect]
     Active Substance: NAPROXEN
     Route: 050
  27. NAPROXEN [Suspect]
     Active Substance: NAPROXEN
     Route: 050
  28. NAPROXEN [Suspect]
     Active Substance: NAPROXEN
     Route: 050
  29. NAPROXEN [Suspect]
     Active Substance: NAPROXEN
     Route: 050
  30. NAPROXEN [Suspect]
     Active Substance: NAPROXEN
     Route: 050
  31. ONDANSETRON HYDROCHLORIDE [Suspect]
     Active Substance: ONDANSETRON HYDROCHLORIDE
     Indication: Migraine
     Route: 050
  32. ONDANSETRON HYDROCHLORIDE [Suspect]
     Active Substance: ONDANSETRON HYDROCHLORIDE
  33. ONDANSETRON HYDROCHLORIDE [Suspect]
     Active Substance: ONDANSETRON HYDROCHLORIDE
     Route: 050
  34. ONDANSETRON HYDROCHLORIDE [Suspect]
     Active Substance: ONDANSETRON HYDROCHLORIDE
  35. DEMEROL [Suspect]
     Active Substance: MEPERIDINE HYDROCHLORIDE
     Indication: Product used for unknown indication
     Route: 065
  36. DEMEROL [Suspect]
     Active Substance: MEPERIDINE HYDROCHLORIDE
  37. DEMEROL [Suspect]
     Active Substance: MEPERIDINE HYDROCHLORIDE
  38. DEMEROL [Suspect]
     Active Substance: MEPERIDINE HYDROCHLORIDE
  39. DEMEROL [Suspect]
     Active Substance: MEPERIDINE HYDROCHLORIDE
  40. DEMEROL [Suspect]
     Active Substance: MEPERIDINE HYDROCHLORIDE
  41. DEMEROL [Suspect]
     Active Substance: MEPERIDINE HYDROCHLORIDE
  42. DEMEROL [Suspect]
     Active Substance: MEPERIDINE HYDROCHLORIDE
  43. DEMEROL [Suspect]
     Active Substance: MEPERIDINE HYDROCHLORIDE
  44. DEMEROL [Suspect]
     Active Substance: MEPERIDINE HYDROCHLORIDE
  45. DEMEROL [Suspect]
     Active Substance: MEPERIDINE HYDROCHLORIDE
  46. DEMEROL [Suspect]
     Active Substance: MEPERIDINE HYDROCHLORIDE
  47. DEMEROL [Suspect]
     Active Substance: MEPERIDINE HYDROCHLORIDE
  48. DEMEROL [Suspect]
     Active Substance: MEPERIDINE HYDROCHLORIDE
  49. DEMEROL [Suspect]
     Active Substance: MEPERIDINE HYDROCHLORIDE
  50. DEMEROL [Suspect]
     Active Substance: MEPERIDINE HYDROCHLORIDE
  51. DEMEROL [Suspect]
     Active Substance: MEPERIDINE HYDROCHLORIDE
  52. DEMEROL [Suspect]
     Active Substance: MEPERIDINE HYDROCHLORIDE
  53. DEMEROL [Suspect]
     Active Substance: MEPERIDINE HYDROCHLORIDE
  54. DEMEROL [Suspect]
     Active Substance: MEPERIDINE HYDROCHLORIDE
  55. DEMEROL [Suspect]
     Active Substance: MEPERIDINE HYDROCHLORIDE
  56. DEMEROL [Suspect]
     Active Substance: MEPERIDINE HYDROCHLORIDE
  57. DEMEROL [Suspect]
     Active Substance: MEPERIDINE HYDROCHLORIDE
  58. DEMEROL [Suspect]
     Active Substance: MEPERIDINE HYDROCHLORIDE
  59. DEMEROL [Suspect]
     Active Substance: MEPERIDINE HYDROCHLORIDE
  60. DEMEROL [Suspect]
     Active Substance: MEPERIDINE HYDROCHLORIDE
  61. DEMEROL [Suspect]
     Active Substance: MEPERIDINE HYDROCHLORIDE
  62. DEMEROL [Suspect]
     Active Substance: MEPERIDINE HYDROCHLORIDE
  63. DEMEROL [Suspect]
     Active Substance: MEPERIDINE HYDROCHLORIDE
  64. DEMEROL [Suspect]
     Active Substance: MEPERIDINE HYDROCHLORIDE
  65. DEMEROL [Suspect]
     Active Substance: MEPERIDINE HYDROCHLORIDE
  66. DEMEROL [Suspect]
     Active Substance: MEPERIDINE HYDROCHLORIDE
  67. DEMEROL [Suspect]
     Active Substance: MEPERIDINE HYDROCHLORIDE
  68. DEMEROL [Suspect]
     Active Substance: MEPERIDINE HYDROCHLORIDE
  69. DEMEROL [Suspect]
     Active Substance: MEPERIDINE HYDROCHLORIDE
  70. DEMEROL [Suspect]
     Active Substance: MEPERIDINE HYDROCHLORIDE
  71. DEMEROL [Suspect]
     Active Substance: MEPERIDINE HYDROCHLORIDE
  72. DEMEROL [Suspect]
     Active Substance: MEPERIDINE HYDROCHLORIDE
  73. DEMEROL [Suspect]
     Active Substance: MEPERIDINE HYDROCHLORIDE
  74. DEMEROL [Suspect]
     Active Substance: MEPERIDINE HYDROCHLORIDE
  75. DEMEROL [Suspect]
     Active Substance: MEPERIDINE HYDROCHLORIDE
  76. DEMEROL [Suspect]
     Active Substance: MEPERIDINE HYDROCHLORIDE
  77. DEMEROL [Suspect]
     Active Substance: MEPERIDINE HYDROCHLORIDE
  78. DEMEROL [Suspect]
     Active Substance: MEPERIDINE HYDROCHLORIDE
  79. DEMEROL [Suspect]
     Active Substance: MEPERIDINE HYDROCHLORIDE
  80. DEMEROL [Suspect]
     Active Substance: MEPERIDINE HYDROCHLORIDE
  81. DEMEROL [Suspect]
     Active Substance: MEPERIDINE HYDROCHLORIDE
  82. DEMEROL [Suspect]
     Active Substance: MEPERIDINE HYDROCHLORIDE
  83. DEMEROL [Suspect]
     Active Substance: MEPERIDINE HYDROCHLORIDE
  84. DEMEROL [Suspect]
     Active Substance: MEPERIDINE HYDROCHLORIDE
  85. HYDROMORPHONE [Suspect]
     Active Substance: HYDROMORPHONE
     Indication: Migraine
     Route: 065
  86. HYDROMORPHONE [Suspect]
     Active Substance: HYDROMORPHONE
  87. ACETAMINOPHEN [Suspect]
     Active Substance: ACETAMINOPHEN
     Indication: Migraine
     Route: 065
  88. ACETAMINOPHEN [Suspect]
     Active Substance: ACETAMINOPHEN
  89. ACETAMINOPHEN [Suspect]
     Active Substance: ACETAMINOPHEN
  90. ACETAMINOPHEN [Suspect]
     Active Substance: ACETAMINOPHEN
  91. ACETAMINOPHEN [Suspect]
     Active Substance: ACETAMINOPHEN
  92. ACETAMINOPHEN [Suspect]
     Active Substance: ACETAMINOPHEN
  93. ACETAMINOPHEN [Suspect]
     Active Substance: ACETAMINOPHEN
  94. ACETAMINOPHEN [Suspect]
     Active Substance: ACETAMINOPHEN
  95. ACETAMINOPHEN [Suspect]
     Active Substance: ACETAMINOPHEN
  96. DICLOFENAC SODIUM [Suspect]
     Active Substance: DICLOFENAC SODIUM
     Indication: Product used for unknown indication
     Route: 065
  97. ACETAMINOPHEN\TRAMADOL [Suspect]
     Active Substance: ACETAMINOPHEN\TRAMADOL
     Indication: Migraine
     Route: 065
  98. NORTRIPTYLINE [Suspect]
     Active Substance: NORTRIPTYLINE
     Indication: Product used for unknown indication
     Route: 065
  99. ADVIL [Suspect]
     Active Substance: IBUPROFEN
     Indication: Product used for unknown indication
     Route: 065
  100. NORTRIPTYLINE HYDROCHLORIDE [Suspect]
     Active Substance: NORTRIPTYLINE HYDROCHLORIDE
     Indication: Product used for unknown indication
     Route: 050
  101. TRAMADOL HYDROCHLORIDE [Suspect]
     Active Substance: TRAMADOL HYDROCHLORIDE
     Indication: Migraine
     Route: 065
  102. ACETAMINOPHEN\TRAMADOL [Suspect]
     Active Substance: ACETAMINOPHEN\TRAMADOL
     Indication: Migraine
     Route: 065
  103. HYDROMORPHONE HYDROCHLORIDE [Suspect]
     Active Substance: HYDROMORPHONE HYDROCHLORIDE
     Indication: Product used for unknown indication
     Route: 065
  104. OXYCODONE HYDROCHLORIDE [Suspect]
     Active Substance: OXYCODONE HYDROCHLORIDE
     Indication: Migraine
     Route: 050
  105. KETAMINE HYDROCHLORIDE [Suspect]
     Active Substance: KETAMINE HYDROCHLORIDE
     Indication: Migraine
     Route: 065
  106. KETAMINE HYDROCHLORIDE [Suspect]
     Active Substance: KETAMINE HYDROCHLORIDE
  107. VENLAFAXINE HYDROCHLORIDE [Suspect]
     Active Substance: VENLAFAXINE HYDROCHLORIDE
     Indication: Migraine
     Route: 065
  108. VOLTAREN [Suspect]
     Active Substance: DICLOFENAC SODIUM
     Indication: Product used for unknown indication
     Route: 065
  109. CELECOXIB [Suspect]
     Active Substance: CELECOXIB
     Indication: Product used for unknown indication
     Route: 065
  110. DIHYDROERGOTAMINE MESYLATE [Suspect]
     Active Substance: DIHYDROERGOTAMINE MESYLATE
     Indication: Migraine
     Route: 065
  111. DIHYDROERGOTAMINE MESYLATE [Suspect]
     Active Substance: DIHYDROERGOTAMINE MESYLATE
  112. DIHYDROERGOTAMINE MESYLATE [Suspect]
     Active Substance: DIHYDROERGOTAMINE MESYLATE
  113. ENDOCET [Suspect]
     Active Substance: ACETAMINOPHEN\OXYCODONE HYDROCHLORIDE
     Indication: Migraine
     Route: 050
  114. BOTULINUM TOXIN TYPE A [Suspect]
     Active Substance: BOTULINUM TOXIN TYPE A
     Indication: Product used for unknown indication
     Route: 065
  115. BOTULINUM TOXIN TYPE A [Suspect]
     Active Substance: BOTULINUM TOXIN TYPE A
     Route: 050
  116. CODEINE [Suspect]
     Active Substance: CODEINE
     Indication: Migraine
     Route: 065
  117. CODEINE [Suspect]
     Active Substance: CODEINE
  118. CODEINE [Suspect]
     Active Substance: CODEINE
  119. CODEINE [Suspect]
     Active Substance: CODEINE
  120. CODEINE [Suspect]
     Active Substance: CODEINE
  121. CODEINE [Suspect]
     Active Substance: CODEINE
  122. CODEINE [Suspect]
     Active Substance: CODEINE
  123. CODEINE [Suspect]
     Active Substance: CODEINE
  124. CODEINE [Suspect]
     Active Substance: CODEINE
  125. CODEINE [Suspect]
     Active Substance: CODEINE
  126. CODEINE [Suspect]
     Active Substance: CODEINE
  127. CODEINE [Suspect]
     Active Substance: CODEINE
  128. CODEINE [Suspect]
     Active Substance: CODEINE
  129. CODEINE [Suspect]
     Active Substance: CODEINE
  130. CODEINE [Suspect]
     Active Substance: CODEINE
  131. CODEINE [Suspect]
     Active Substance: CODEINE
  132. CODEINE [Suspect]
     Active Substance: CODEINE
  133. CODEINE [Suspect]
     Active Substance: CODEINE
  134. CODEINE [Suspect]
     Active Substance: CODEINE
  135. CODEINE [Suspect]
     Active Substance: CODEINE
  136. CODEINE [Suspect]
     Active Substance: CODEINE
  137. CODEINE [Suspect]
     Active Substance: CODEINE
  138. CODEINE [Suspect]
     Active Substance: CODEINE
  139. CODEINE [Suspect]
     Active Substance: CODEINE
  140. CODEINE [Suspect]
     Active Substance: CODEINE
  141. CODEINE [Suspect]
     Active Substance: CODEINE
  142. CODEINE [Suspect]
     Active Substance: CODEINE
  143. CODEINE [Suspect]
     Active Substance: CODEINE
  144. CODEINE [Suspect]
     Active Substance: CODEINE
  145. CODEINE [Suspect]
     Active Substance: CODEINE
  146. CODEINE [Suspect]
     Active Substance: CODEINE
  147. CODEINE [Suspect]
     Active Substance: CODEINE
  148. CODEINE [Suspect]
     Active Substance: CODEINE
  149. PROPRANOLOL [Suspect]
     Active Substance: PROPRANOLOL HYDROCHLORIDE
     Indication: Migraine
     Route: 065
  150. ACETAMINOPHEN\TRAMADOL HYDROCHLORIDE [Suspect]
     Active Substance: ACETAMINOPHEN\TRAMADOL HYDROCHLORIDE
     Indication: Migraine
     Route: 065
  151. ACETAMINOPHEN\TRAMADOL HYDROCHLORIDE [Suspect]
     Active Substance: ACETAMINOPHEN\TRAMADOL HYDROCHLORIDE
  152. ACETAMINOPHEN\TRAMADOL HYDROCHLORIDE [Suspect]
     Active Substance: ACETAMINOPHEN\TRAMADOL HYDROCHLORIDE
  153. BOTOX [Suspect]
     Active Substance: ONABOTULINUMTOXINA
     Indication: Product used for unknown indication
     Route: 065
  154. BOTOX [Suspect]
     Active Substance: ONABOTULINUMTOXINA
  155. BOTOX [Suspect]
     Active Substance: ONABOTULINUMTOXINA
  156. BOTOX [Suspect]
     Active Substance: ONABOTULINUMTOXINA
  157. BOTOX [Suspect]
     Active Substance: ONABOTULINUMTOXINA
  158. BOTOX [Suspect]
     Active Substance: ONABOTULINUMTOXINA
  159. BOTOX [Suspect]
     Active Substance: ONABOTULINUMTOXINA
  160. BOTOX [Suspect]
     Active Substance: ONABOTULINUMTOXINA
  161. BOTOX [Suspect]
     Active Substance: ONABOTULINUMTOXINA
  162. BOTOX [Suspect]
     Active Substance: ONABOTULINUMTOXINA
  163. BOTOX [Suspect]
     Active Substance: ONABOTULINUMTOXINA
  164. BOTOX [Suspect]
     Active Substance: ONABOTULINUMTOXINA
  165. BOTOX [Suspect]
     Active Substance: ONABOTULINUMTOXINA
  166. BOTOX [Suspect]
     Active Substance: ONABOTULINUMTOXINA
  167. BOTOX [Suspect]
     Active Substance: ONABOTULINUMTOXINA
  168. BOTOX [Suspect]
     Active Substance: ONABOTULINUMTOXINA
  169. BOTOX [Suspect]
     Active Substance: ONABOTULINUMTOXINA
  170. BOTOX [Suspect]
     Active Substance: ONABOTULINUMTOXINA
  171. BOTOX [Suspect]
     Active Substance: ONABOTULINUMTOXINA
  172. BOTOX [Suspect]
     Active Substance: ONABOTULINUMTOXINA
  173. BOTOX [Suspect]
     Active Substance: ONABOTULINUMTOXINA
  174. BOTOX [Suspect]
     Active Substance: ONABOTULINUMTOXINA
  175. BOTOX [Suspect]
     Active Substance: ONABOTULINUMTOXINA
  176. BOTOX [Suspect]
     Active Substance: ONABOTULINUMTOXINA
  177. BOTOX [Suspect]
     Active Substance: ONABOTULINUMTOXINA
  178. BOTOX [Suspect]
     Active Substance: ONABOTULINUMTOXINA
  179. BOTOX [Suspect]
     Active Substance: ONABOTULINUMTOXINA
  180. BOTOX [Suspect]
     Active Substance: ONABOTULINUMTOXINA
  181. BOTOX [Suspect]
     Active Substance: ONABOTULINUMTOXINA
  182. BOTOX [Suspect]
     Active Substance: ONABOTULINUMTOXINA
  183. BOTOX [Suspect]
     Active Substance: ONABOTULINUMTOXINA
  184. BOTOX [Suspect]
     Active Substance: ONABOTULINUMTOXINA
  185. BOTOX [Suspect]
     Active Substance: ONABOTULINUMTOXINA
  186. BOTOX [Suspect]
     Active Substance: ONABOTULINUMTOXINA
  187. BOTOX [Suspect]
     Active Substance: ONABOTULINUMTOXINA
  188. BOTOX [Suspect]
     Active Substance: ONABOTULINUMTOXINA
  189. BOTOX [Suspect]
     Active Substance: ONABOTULINUMTOXINA
  190. BOTOX [Suspect]
     Active Substance: ONABOTULINUMTOXINA
  191. BOTOX [Suspect]
     Active Substance: ONABOTULINUMTOXINA
  192. BOTOX [Suspect]
     Active Substance: ONABOTULINUMTOXINA
  193. BOTOX [Suspect]
     Active Substance: ONABOTULINUMTOXINA
  194. BOTOX [Suspect]
     Active Substance: ONABOTULINUMTOXINA
  195. BOTOX [Suspect]
     Active Substance: ONABOTULINUMTOXINA
  196. BOTOX [Suspect]
     Active Substance: ONABOTULINUMTOXINA
  197. BOTOX [Suspect]
     Active Substance: ONABOTULINUMTOXINA
  198. BOTOX [Suspect]
     Active Substance: ONABOTULINUMTOXINA
  199. BOTOX [Suspect]
     Active Substance: ONABOTULINUMTOXINA
  200. BOTOX [Suspect]
     Active Substance: ONABOTULINUMTOXINA
  201. BOTOX [Suspect]
     Active Substance: ONABOTULINUMTOXINA
  202. BOTOX [Suspect]
     Active Substance: ONABOTULINUMTOXINA
  203. DULOXETINE [Suspect]
     Active Substance: DULOXETINE
     Indication: Migraine
     Route: 065
  204. DULOXETINE [Suspect]
     Active Substance: DULOXETINE
  205. AMITRIPTYLINE [Suspect]
     Active Substance: AMITRIPTYLINE
     Indication: Product used for unknown indication
     Route: 065
  206. AMITRIPTYLINE [Suspect]
     Active Substance: AMITRIPTYLINE
  207. AMITRIPTYLINE [Suspect]
     Active Substance: AMITRIPTYLINE
  208. AMITRIPTYLINE [Suspect]
     Active Substance: AMITRIPTYLINE
  209. AMITRIPTYLINE [Suspect]
     Active Substance: AMITRIPTYLINE
  210. AMITRIPTYLINE [Suspect]
     Active Substance: AMITRIPTYLINE
  211. AMITRIPTYLINE [Suspect]
     Active Substance: AMITRIPTYLINE
  212. AMITRIPTYLINE [Suspect]
     Active Substance: AMITRIPTYLINE
  213. AMITRIPTYLINE [Suspect]
     Active Substance: AMITRIPTYLINE
  214. AMITRIPTYLINE [Suspect]
     Active Substance: AMITRIPTYLINE
  215. AMITRIPTYLINE [Suspect]
     Active Substance: AMITRIPTYLINE
  216. AMITRIPTYLINE [Suspect]
     Active Substance: AMITRIPTYLINE
  217. AMITRIPTYLINE [Suspect]
     Active Substance: AMITRIPTYLINE
  218. AMITRIPTYLINE [Suspect]
     Active Substance: AMITRIPTYLINE
  219. AMITRIPTYLINE [Suspect]
     Active Substance: AMITRIPTYLINE
  220. AMITRIPTYLINE [Suspect]
     Active Substance: AMITRIPTYLINE
  221. AMITRIPTYLINE [Suspect]
     Active Substance: AMITRIPTYLINE
  222. AMITRIPTYLINE [Suspect]
     Active Substance: AMITRIPTYLINE
  223. AMITRIPTYLINE [Suspect]
     Active Substance: AMITRIPTYLINE
  224. TENORETIC [Suspect]
     Active Substance: ATENOLOL\CHLORTHALIDONE
     Indication: Product used for unknown indication
     Route: 050
  225. TENORETIC [Suspect]
     Active Substance: ATENOLOL\CHLORTHALIDONE
     Route: 050
  226. TENORETIC [Suspect]
     Active Substance: ATENOLOL\CHLORTHALIDONE
     Route: 050
  227. TENORETIC [Suspect]
     Active Substance: ATENOLOL\CHLORTHALIDONE
     Route: 050
  228. TENORETIC [Suspect]
     Active Substance: ATENOLOL\CHLORTHALIDONE
     Route: 050
  229. TENORETIC [Suspect]
     Active Substance: ATENOLOL\CHLORTHALIDONE
     Route: 050
  230. TENORETIC [Suspect]
     Active Substance: ATENOLOL\CHLORTHALIDONE
     Route: 050
  231. TENORETIC [Suspect]
     Active Substance: ATENOLOL\CHLORTHALIDONE
     Route: 050
  232. TENORETIC [Suspect]
     Active Substance: ATENOLOL\CHLORTHALIDONE
     Route: 050
  233. TENORETIC [Suspect]
     Active Substance: ATENOLOL\CHLORTHALIDONE
     Route: 050
  234. TENORETIC [Suspect]
     Active Substance: ATENOLOL\CHLORTHALIDONE
     Route: 050
  235. TENORETIC [Suspect]
     Active Substance: ATENOLOL\CHLORTHALIDONE
  236. TENORETIC [Suspect]
     Active Substance: ATENOLOL\CHLORTHALIDONE
     Route: 050
  237. TENORETIC [Suspect]
     Active Substance: ATENOLOL\CHLORTHALIDONE
     Route: 050
  238. TENORETIC [Suspect]
     Active Substance: ATENOLOL\CHLORTHALIDONE
     Route: 050
  239. TENORETIC [Suspect]
     Active Substance: ATENOLOL\CHLORTHALIDONE
     Route: 050
  240. TENORETIC [Suspect]
     Active Substance: ATENOLOL\CHLORTHALIDONE
     Route: 050
  241. TENORETIC [Suspect]
     Active Substance: ATENOLOL\CHLORTHALIDONE
     Route: 050
  242. TENORETIC [Suspect]
     Active Substance: ATENOLOL\CHLORTHALIDONE
     Route: 050
  243. TENORETIC [Suspect]
     Active Substance: ATENOLOL\CHLORTHALIDONE
     Route: 050
  244. TENORETIC [Suspect]
     Active Substance: ATENOLOL\CHLORTHALIDONE
     Route: 050
  245. TENORETIC [Suspect]
     Active Substance: ATENOLOL\CHLORTHALIDONE
     Route: 050
  246. TENORETIC [Suspect]
     Active Substance: ATENOLOL\CHLORTHALIDONE
     Route: 050
  247. TENORETIC [Suspect]
     Active Substance: ATENOLOL\CHLORTHALIDONE
     Route: 050
  248. TENORETIC [Suspect]
     Active Substance: ATENOLOL\CHLORTHALIDONE
     Route: 050
  249. TENORETIC [Suspect]
     Active Substance: ATENOLOL\CHLORTHALIDONE
     Route: 050
  250. TENORETIC [Suspect]
     Active Substance: ATENOLOL\CHLORTHALIDONE
     Route: 050
  251. TENORETIC [Suspect]
     Active Substance: ATENOLOL\CHLORTHALIDONE
     Route: 050
  252. TENORETIC [Suspect]
     Active Substance: ATENOLOL\CHLORTHALIDONE
     Route: 050
  253. TENORETIC [Suspect]
     Active Substance: ATENOLOL\CHLORTHALIDONE
     Route: 050
  254. TENORETIC [Suspect]
     Active Substance: ATENOLOL\CHLORTHALIDONE
     Route: 050
  255. TENORETIC [Suspect]
     Active Substance: ATENOLOL\CHLORTHALIDONE
     Route: 050
  256. TENORETIC [Suspect]
     Active Substance: ATENOLOL\CHLORTHALIDONE
     Route: 050
  257. TENORETIC [Suspect]
     Active Substance: ATENOLOL\CHLORTHALIDONE
     Route: 050
  258. TENORETIC [Suspect]
     Active Substance: ATENOLOL\CHLORTHALIDONE
     Route: 050
  259. TENORETIC [Suspect]
     Active Substance: ATENOLOL\CHLORTHALIDONE
     Route: 050
  260. TENORETIC [Suspect]
     Active Substance: ATENOLOL\CHLORTHALIDONE
  261. TENORETIC [Suspect]
     Active Substance: ATENOLOL\CHLORTHALIDONE
     Route: 050
  262. TENORETIC [Suspect]
     Active Substance: ATENOLOL\CHLORTHALIDONE
     Route: 050
  263. TENORETIC [Suspect]
     Active Substance: ATENOLOL\CHLORTHALIDONE
     Route: 050
  264. TENORETIC [Suspect]
     Active Substance: ATENOLOL\CHLORTHALIDONE
     Route: 050
  265. TENORETIC [Suspect]
     Active Substance: ATENOLOL\CHLORTHALIDONE
     Route: 050
  266. TENORETIC [Suspect]
     Active Substance: ATENOLOL\CHLORTHALIDONE
     Route: 050
  267. TENORETIC [Suspect]
     Active Substance: ATENOLOL\CHLORTHALIDONE
     Route: 050
  268. TENORETIC [Suspect]
     Active Substance: ATENOLOL\CHLORTHALIDONE
     Route: 050
  269. TENORETIC [Suspect]
     Active Substance: ATENOLOL\CHLORTHALIDONE
     Route: 050
  270. TENORETIC [Suspect]
     Active Substance: ATENOLOL\CHLORTHALIDONE
     Route: 050
  271. TENORETIC [Suspect]
     Active Substance: ATENOLOL\CHLORTHALIDONE
     Route: 050
  272. TENORETIC [Suspect]
     Active Substance: ATENOLOL\CHLORTHALIDONE
     Route: 050
  273. TENORETIC [Suspect]
     Active Substance: ATENOLOL\CHLORTHALIDONE
     Route: 050
  274. PANADOL [Suspect]
     Active Substance: ACETAMINOPHEN
     Indication: Migraine
     Route: 065
  275. ESOMEPRAZOLE [Suspect]
     Active Substance: ESOMEPRAZOLE
     Indication: Product used for unknown indication
     Route: 050

REACTIONS (8)
  - Nephrolithiasis [Unknown]
  - Sedation [Unknown]
  - Nightmare [Unknown]
  - Off label use [Unknown]
  - Product use in unapproved indication [Unknown]
  - Drug ineffective [Unknown]
  - Nausea [Unknown]
  - Hyperhidrosis [Unknown]
